FAERS Safety Report 6570227-1 (Version None)
Quarter: 2010Q1

REPORT INFORMATION
  Report Type: 
  Country: None (occurrence: None)
  Receive Date: 20100202
  Receipt Date: 20100202
  Transmission Date: 20100710
  Serious: Yes (Other)
  Sender: FDA-Public Use
  Company Number: None

PATIENT
  Sex: Male
  Weight: 92.9874 kg

DRUGS (1)
  1. TYLENOL [Suspect]
     Indication: ARTHRALGIA
     Dosage: 2 CAPLETS PER DAY
     Dates: start: 20091015, end: 20100104

REACTIONS (4)
  - DIARRHOEA [None]
  - FLATULENCE [None]
  - NASOPHARYNGITIS [None]
  - PRODUCT QUALITY ISSUE [None]
